FAERS Safety Report 10471034 (Version 1)
Quarter: 2014Q3

REPORT INFORMATION
  Report Type: Spontaneous
  Country: US (occurrence: US)
  Receive Date: 20140923
  Receipt Date: 20140923
  Transmission Date: 20150326
  Serious: Yes (Other)
  Sender: FDA-Public Use
  Company Number: US-ABBVIE-14P-163-1285764-00

PATIENT
  Age: 59 Year
  Sex: Male

DRUGS (2)
  1. TESTIM [Concomitant]
     Active Substance: TESTOSTERONE
     Indication: BLOOD TESTOSTERONE DECREASED
     Dates: start: 20120430, end: 20120726
  2. ANDROGEL [Suspect]
     Active Substance: TESTOSTERONE
     Indication: BLOOD TESTOSTERONE DECREASED
     Dates: start: 20120726

REACTIONS (10)
  - Pain [Unknown]
  - Chest pain [Unknown]
  - Economic problem [Unknown]
  - Impaired work ability [Unknown]
  - Injury [Unknown]
  - Anxiety [Unknown]
  - Anhedonia [Unknown]
  - Social problem [Unknown]
  - Deep vein thrombosis [Unknown]
  - Fear [Unknown]

NARRATIVE: CASE EVENT DATE: 20120921
